FAERS Safety Report 18861588 (Version 4)
Quarter: 2022Q1

REPORT INFORMATION
  Report Type: Report from Study
  Country: GB (occurrence: GB)
  Receive Date: 20210208
  Receipt Date: 20220125
  Transmission Date: 20220423
  Serious: Yes (Other)
  Sender: FDA-Public Use
  Company Number: NVSC2021GB024123

PATIENT
  Age: 7 Year
  Sex: Female

DRUGS (2)
  1. OMNITROPE [Suspect]
     Active Substance: SOMATROPIN
     Indication: Growth hormone deficiency
     Dosage: 0.7 MG, QD
     Route: 065
     Dates: start: 20201229
  2. OMNITROPE [Suspect]
     Active Substance: SOMATROPIN
     Dosage: 0.7 MG (EVERY NIGHT)
     Route: 058

REACTIONS (3)
  - Renal failure [Unknown]
  - Injection site pain [Unknown]
  - Product dose omission issue [Unknown]
